APPROVED DRUG PRODUCT: MOXIFLOXACIN HYDROCHLORIDE
Active Ingredient: MOXIFLOXACIN HYDROCHLORIDE
Strength: EQ 400MG BASE
Dosage Form/Route: TABLET;ORAL
Application: A205348 | Product #001 | TE Code: AB
Applicant: CROSSMEDIKA SA
Approved: Jan 14, 2016 | RLD: No | RS: No | Type: RX